FAERS Safety Report 24842502 (Version 1)
Quarter: 2025Q1

REPORT INFORMATION
  Report Type: Spontaneous
  Country: US (occurrence: US)
  Receive Date: 20250115
  Receipt Date: 20250115
  Transmission Date: 20250409
  Serious: No
  Sender: Harrow Health
  Company Number: US-IMP-2025000017

PATIENT
  Age: 81 Year
  Sex: Female

DRUGS (1)
  1. VEVYE [Suspect]
     Active Substance: CYCLOSPORINE
     Indication: Dry eye
     Dosage: ONLY ONE EYE
     Route: 047
     Dates: start: 2024

REACTIONS (2)
  - Product packaging quantity issue [Unknown]
  - Intentional product misuse [Unknown]
